FAERS Safety Report 13840567 (Version 1)
Quarter: 2017Q3

REPORT INFORMATION
  Report Type: Spontaneous
  Country: FR (occurrence: FR)
  Receive Date: 20170807
  Receipt Date: 20170807
  Transmission Date: 20171127
  Serious: Yes (Hospitalization)
  Sender: FDA-Public Use
  Company Number: FR-PFIZER INC-2017331310

PATIENT
  Age: 86 Year
  Sex: Female

DRUGS (3)
  1. RIFADINE /00146901/ [Suspect]
     Active Substance: RIFAMPIN
     Indication: INTERVERTEBRAL DISCITIS
     Dosage: 900 MG, DAILY (300 MG X2 IN THE MORNING AND 300 MG IN THE EVENING)
     Route: 048
     Dates: start: 20170213, end: 20170626
  2. CIFLOX /00697201/ [Suspect]
     Active Substance: CIPROFLOXACIN
     Indication: INTERVERTEBRAL DISCITIS
     Dosage: 500 MG, 2X/DAY
     Route: 048
     Dates: start: 20170213, end: 20170626
  3. DALACINE [Suspect]
     Active Substance: CLINDAMYCIN HYDROCHLORIDE
     Indication: INTERVERTEBRAL DISCITIS
     Dosage: 600 MG (300 MG X2), 3X/DAY
     Route: 048
     Dates: start: 20170213, end: 20170626

REACTIONS (1)
  - Acute kidney injury [Recovering/Resolving]

NARRATIVE: CASE EVENT DATE: 20170626
